FAERS Safety Report 7648518-2 (Version None)
Quarter: 2011Q3

REPORT INFORMATION
  Report Type: 
  Country: None (occurrence: None)
  Receive Date: 20110801
  Receipt Date: 20110728
  Transmission Date: 20111222
  Serious: Yes (Other)
  Sender: FDA-Public Use
  Company Number: US-PFIZER INC-2011114004

PATIENT
  Sex: Female

DRUGS (4)
  1. CHANTIX [Suspect]
     Dosage: 1 MG, UNK
     Dates: start: 20090901, end: 20091001
  2. LENOXIN [Concomitant]
     Indication: HEART RATE
     Dosage: UNK
     Dates: start: 20000101, end: 20080101
  3. CARISOPRODOL [Concomitant]
     Indication: MUSCLE RELAXANT THERAPY
     Dosage: UNK
     Dates: start: 20010101
  4. CHANTIX [Suspect]
     Indication: SMOKING CESSATION THERAPY
     Dosage: 1 MG, UNK
     Dates: start: 20070101, end: 20070601

REACTIONS (6)
  - MENTAL DISORDER [None]
  - INTENTIONAL OVERDOSE [None]
  - BIPOLAR DISORDER [None]
  - ANXIETY [None]
  - DEPRESSION [None]
  - SUICIDE ATTEMPT [None]
